FAERS Safety Report 15286520 (Version 8)
Quarter: 2018Q4

REPORT INFORMATION
  Report Type: Report from Study
  Country: US (occurrence: US)
  Receive Date: 20180816
  Receipt Date: 20181019
  Transmission Date: 20190204
  Serious: Yes (Hospitalization, Other)
  Sender: FDA-Public Use
  Company Number: US-ACTELION-A-NJ2018-173734

PATIENT
  Age: 70 Year
  Sex: Female
  Weight: 74.83 kg

DRUGS (6)
  1. REVATIO [Concomitant]
     Active Substance: SILDENAFIL CITRATE
  2. HYDROXYCHLOROQUINE [Concomitant]
     Active Substance: HYDROXYCHLOROQUINE
  3. OPSUMIT [Suspect]
     Active Substance: MACITENTAN
     Indication: PULMONARY ARTERIAL HYPERTENSION
     Dosage: 10 MG, QD
     Route: 048
     Dates: start: 20180522
  4. PREDNISONE. [Concomitant]
     Active Substance: PREDNISONE
  5. IBUPROFEN. [Concomitant]
     Active Substance: IBUPROFEN
  6. VELETRI [Suspect]
     Active Substance: EPOPROSTENOL
     Indication: PULMONARY ARTERIAL HYPERTENSION
     Dosage: 18 NG/KG, PER MIN
     Route: 042

REACTIONS (15)
  - Confusional state [Unknown]
  - Neuropathy peripheral [Unknown]
  - Back pain [Unknown]
  - Hospice care [Unknown]
  - Encephalopathy [Unknown]
  - Hypersomnia [Unknown]
  - Catheterisation cardiac [Unknown]
  - Poor quality sleep [Not Recovered/Not Resolved]
  - Pulmonary arterial pressure [Unknown]
  - Spinal laminectomy [Unknown]
  - Arthritis [Unknown]
  - Granuloma [Unknown]
  - Intervertebral disc protrusion [Unknown]
  - Transient ischaemic attack [Unknown]
  - Fatigue [Unknown]

NARRATIVE: CASE EVENT DATE: 201709
